FAERS Safety Report 8957257 (Version 1)
Quarter: 2012Q4

REPORT INFORMATION
  Report Type: 
  Country: CA (occurrence: CA)
  Receive Date: 20121210
  Receipt Date: 20121210
  Transmission Date: 20130627
  Serious: Yes (Other)
  Sender: FDA-Public Use
  Company Number: CA-ROCHE-1165724

PATIENT
  Sex: Male
  Weight: 81 kg

DRUGS (4)
  1. XOLAIR [Suspect]
     Indication: PRODUCT USED FOR UNKNOWN INDICATION
     Route: 058
     Dates: start: 20060215
  2. CORTISONE [Concomitant]
     Route: 065
  3. CORTISONE [Concomitant]
     Route: 065
  4. BRICANYL [Concomitant]
     Route: 065

REACTIONS (4)
  - Asthma [Unknown]
  - Bronchitis [Unknown]
  - Back pain [Unknown]
  - Productive cough [Unknown]
